FAERS Safety Report 10508599 (Version 5)
Quarter: 2015Q2

REPORT INFORMATION
  Report Type: Report from Study
  Country: US (occurrence: US)
  Receive Date: 20141009
  Receipt Date: 20150429
  Transmission Date: 20150821
  Serious: Yes (Death, Hospitalization, Other)
  Sender: FDA-Public Use
  Company Number: US-ACTELION-A-NJ2014-106078

PATIENT
  Age: 61 Year
  Sex: Female

DRUGS (2)
  1. SILDENAFIL. [Concomitant]
     Active Substance: SILDENAFIL
  2. MACITENTAN [Suspect]
     Active Substance: MACITENTAN
     Indication: PULMONARY ARTERIAL HYPERTENSION
     Dosage: 10 MG, QD
     Route: 048
     Dates: start: 20140801, end: 20141002

REACTIONS (6)
  - Disease progression [Fatal]
  - Chronic obstructive pulmonary disease [Unknown]
  - Acute respiratory failure [Fatal]
  - Pleural effusion [Unknown]
  - Pulmonary arterial hypertension [Fatal]
  - Pleural fibrosis [Unknown]

NARRATIVE: CASE EVENT DATE: 20140919
